FAERS Safety Report 9768881 (Version 1)
Quarter: 2013Q4

REPORT INFORMATION
  Report Type: Spontaneous
  Country: JP (occurrence: None)
  Receive Date: 20131216
  Receipt Date: 20131216
  Transmission Date: 20140711
  Serious: Yes (Death, Hospitalization)
  Sender: FDA-Public Use
  Company Number: CO-OR-JP-2013-229

PATIENT
  Age: 71 Year
  Sex: Male

DRUGS (4)
  1. PREDNISOLONE [Suspect]
     Indication: PROSTATE CANCER
  2. DOCETAXEL [Suspect]
     Indication: PROSTATE CANCER
     Dosage: ADMINISTERED AS A 1-H INTRAVENOUS INFUSION ON DAY?2. REPEATED EVERY 21 DAYS
     Route: 042
  3. ESTRAMUSTINE [Suspect]
     Dosage: ADMINISTERED ON DAYS 1-5 AND DAYS 8-12
  4. DEXAMETHASONE [Concomitant]

REACTIONS (1)
  - Febrile neutropenia [None]
